FAERS Safety Report 5102490-8 (Version None)
Quarter: 2006Q3

REPORT INFORMATION
  Report Type: 
  Country: None (occurrence: None)
  Receive Date: 20060912
  Receipt Date: 20060621
  Transmission Date: 20061208
  Serious: Yes (Other)
  Sender: FDA-Public Use
  Company Number: US-ROCHE-452962

PATIENT
  Age: 59 Year
  Sex: Female
  Weight: 81.2 kg

DRUGS (9)
  1. XELODA [Suspect]
     Indication: BREAST CANCER METASTATIC
     Route: 048
     Dates: start: 20060607
  2. XELODA [Suspect]
     Dosage: DOSE REPORTED AS DECREASED
     Route: 048
  3. ZOMETA [Suspect]
     Indication: DRUG USE FOR UNKNOWN INDICATION
     Route: 042
     Dates: start: 20060626
  4. ENALAPRIL [Concomitant]
     Route: 048
  5. POTASSIUM [Concomitant]
     Route: 048
  6. ZOLOFT [Concomitant]
     Route: 048
  7. FOLIC ACID [Concomitant]
  8. VITAMIN B6 [Concomitant]
  9. ZYRTEC [Concomitant]

REACTIONS (6)
  - CATARACT NUCLEAR [None]
  - INTRAOCULAR PRESSURE INCREASED [None]
  - MACULOPATHY [None]
  - OPTIC NEUROPATHY [None]
  - PAPILLOEDEMA [None]
  - VITREOUS DETACHMENT [None]
